FAERS Safety Report 6745106-7 (Version None)
Quarter: 2010Q2

REPORT INFORMATION
  Report Type: 
  Country: None (occurrence: None)
  Receive Date: 20100527
  Receipt Date: 20100517
  Transmission Date: 20101027
  Serious: Yes (Other)
  Sender: FDA-Public Use
  Company Number: CH-WATSON-2010-06863

PATIENT
  Age: 16 Year
  Sex: Male

DRUGS (1)
  1. FLUVOXAMINE (WATSON LABORATORIES) [Suspect]
     Indication: DEPRESSION
     Dosage: 100 MG, DAILY
     Route: 048
     Dates: start: 20080201

REACTIONS (1)
  - BRUGADA SYNDROME [None]
